FAERS Safety Report 7620448-1 (Version None)
Quarter: 2011Q3

REPORT INFORMATION
  Report Type: 
  Country: None (occurrence: None)
  Receive Date: 20110719
  Receipt Date: 20110714
  Transmission Date: 20111222
  Serious: Yes (Death, Life-Threatening, Hospitalization)
  Sender: FDA-Public Use
  Company Number: PHHO2007US21153

PATIENT
  Sex: Female

DRUGS (2)
  1. ZORTRESS [Suspect]
     Indication: HEART TRANSPLANT
     Dosage: 0.5 MG, BID
     Route: 048
     Dates: start: 20071119, end: 20071224
  2. NEORAL [Suspect]
     Indication: HEART TRANSPLANT
     Dosage: 125 MG, BID
     Route: 048
     Dates: start: 20071217

REACTIONS (9)
  - CARDIAC ARREST [None]
  - LETHARGY [None]
  - FOAMING AT MOUTH [None]
  - HYPOXIC-ISCHAEMIC ENCEPHALOPATHY [None]
  - VENTRICULAR FIBRILLATION [None]
  - CARDIO-RESPIRATORY ARREST [None]
  - PULSELESS ELECTRICAL ACTIVITY [None]
  - THROMBOTIC THROMBOCYTOPENIC PURPURA [None]
  - WOUND DEHISCENCE [None]
